FAERS Safety Report 9994914 (Version 2)
Quarter: 2014Q2

REPORT INFORMATION
  Report Type: Report from Study
  Country: JP (occurrence: JP)
  Receive Date: 20140311
  Receipt Date: 20140418
  Transmission Date: 20141212
  Serious: Yes (Life-Threatening, Other)
  Sender: FDA-Public Use
  Company Number: JP-JNJFOC-20140304455

PATIENT
  Age: 82 Year
  Sex: Female
  Weight: 36 kg

DRUGS (22)
  1. SIMPONI [Suspect]
     Indication: RHEUMATOID ARTHRITIS
     Route: 058
     Dates: start: 20130502
  2. SIMPONI [Suspect]
     Indication: RHEUMATOID ARTHRITIS
     Route: 058
     Dates: start: 20130404
  3. SIMPONI [Suspect]
     Indication: RHEUMATOID ARTHRITIS
     Route: 058
     Dates: start: 20130802
  4. SIMPONI [Suspect]
     Indication: RHEUMATOID ARTHRITIS
     Route: 058
     Dates: start: 20130204
  5. SIMPONI [Suspect]
     Indication: RHEUMATOID ARTHRITIS
     Route: 058
     Dates: start: 20130530
  6. SIMPONI [Suspect]
     Indication: RHEUMATOID ARTHRITIS
     Route: 058
     Dates: start: 20130705
  7. SIMPONI [Suspect]
     Indication: RHEUMATOID ARTHRITIS
     Route: 058
     Dates: start: 20130304
  8. EDIROL [Suspect]
     Indication: PROPHYLAXIS
     Route: 048
     Dates: end: 20130502
  9. METHOTREXATE [Concomitant]
     Route: 065
     Dates: end: 20121206
  10. METHOTREXATE [Concomitant]
     Route: 065
     Dates: start: 20121207
  11. PREDOHAN [Concomitant]
     Indication: RHEUMATOID ARTHRITIS
     Route: 048
     Dates: start: 20130218
  12. PREDOHAN [Concomitant]
     Indication: RHEUMATOID ARTHRITIS
     Route: 048
     Dates: start: 20120218, end: 20130217
  13. PREDOHAN [Concomitant]
     Indication: RHEUMATOID ARTHRITIS
     Route: 048
     Dates: end: 20121217
  14. LOXONIN [Concomitant]
     Indication: RHEUMATOID ARTHRITIS
     Route: 048
  15. KETOPROFEN [Concomitant]
     Indication: RHEUMATOID ARTHRITIS
     Route: 062
  16. FOLIAMIN [Concomitant]
     Indication: PROPHYLAXIS
     Route: 048
  17. ANPLAG [Concomitant]
     Indication: THROMBOANGIITIS OBLITERANS
     Route: 048
  18. PARIET [Concomitant]
     Indication: GASTRIC ULCER
     Route: 048
  19. AMLODIPINE [Concomitant]
     Indication: ANGINA PECTORIS
     Route: 048
  20. FEBURIC [Concomitant]
     Indication: HYPERURICAEMIA
     Route: 048
  21. MINODRONIC ACID [Concomitant]
     Indication: OSTEOPOROSIS
     Route: 048
  22. DYDRENE [Concomitant]
     Indication: ANGINA PECTORIS
     Route: 062

REACTIONS (2)
  - Renal failure [Recovering/Resolving]
  - Hypercalcaemia [Recovering/Resolving]
